FAERS Safety Report 7996681-6 (Version None)
Quarter: 2011Q4

REPORT INFORMATION
  Report Type: 
  Country: None (occurrence: None)
  Receive Date: 20111221
  Receipt Date: 20111212
  Transmission Date: 20120403
  Serious: Yes (Other)
  Sender: FDA-Public Use
  Company Number: US-BAYER-2011-046028

PATIENT
  Age: 19 Year
  Sex: Female
  Weight: 62.585 kg

DRUGS (4)
  1. METRONIDAZOLE [Concomitant]
     Dosage: UNK
     Dates: start: 20070108
  2. YASMIN [Suspect]
     Indication: CONTRACEPTION
     Dosage: UNK
     Dates: start: 20050617, end: 20060612
  3. ZMAX ER [Concomitant]
     Dosage: UNK
     Dates: start: 20070119
  4. DOXYCYCLINE HYCLATE [Concomitant]
     Dosage: UNK
     Dates: start: 20070117, end: 20070128

REACTIONS (6)
  - NON-CARDIAC CHEST PAIN [None]
  - CHOLELITHIASIS [None]
  - ANHEDONIA [None]
  - PAIN [None]
  - INJURY [None]
  - EMOTIONAL DISTRESS [None]
